FAERS Safety Report 13180591 (Version 1)
Quarter: 2017Q1

REPORT INFORMATION
  Report Type: Spontaneous
  Country: IT (occurrence: IT)
  Receive Date: 20170202
  Receipt Date: 20170202
  Transmission Date: 20170428
  Serious: Yes (Death, Life-Threatening, Hospitalization)
  Sender: FDA-Public Use
  Company Number: IT-BAYER-2017-015273

PATIENT
  Sex: Male

DRUGS (5)
  1. AGGRASTAT [Suspect]
     Active Substance: TIROFIBAN HYDROCHLORIDE
  2. HEPARIN [Suspect]
     Active Substance: HEPARIN SODIUM
     Dosage: UNK
  3. LEVOSIMENDAN [Concomitant]
     Active Substance: LEVOSIMENDAN
     Indication: LEFT VENTRICULAR DYSFUNCTION
     Dosage: UNK
  4. TICAGRELOR [Suspect]
     Active Substance: TICAGRELOR
     Indication: PLATELET AGGREGATION INHIBITION
     Dosage: UNK
  5. ACETYLSALICYLIC ACID({=100 MG) [Suspect]
     Active Substance: ASPIRIN
     Indication: PLATELET AGGREGATION INHIBITION
     Dosage: UNK

REACTIONS (11)
  - Haemodynamic instability [None]
  - Rectal cancer [None]
  - Rectal haemorrhage [None]
  - Condition aggravated [Fatal]
  - Drug administration error [None]
  - Procedural haemorrhage [None]
  - Haematochezia [None]
  - Cardiac arrest [None]
  - Labelled drug-drug interaction medication error [None]
  - Gastrointestinal ulcer haemorrhage [None]
  - Anaemia [None]
